FAERS Safety Report 18599849 (Version 1)
Quarter: 2020Q4

REPORT INFORMATION
  Report Type: Spontaneous
  Country: US (occurrence: US)
  Receive Date: 20201210
  Receipt Date: 20201210
  Transmission Date: 20210114
  Serious: No
  Sender: FDA-Public Use
  Company Number: US-VERTEX PHARMACEUTICALS-2020-024200

PATIENT
  Sex: Female

DRUGS (6)
  1. KALYDECO [Suspect]
     Active Substance: IVACAFTOR
     Indication: CYSTIC FIBROSIS
     Dosage: 150 MG, QD
     Route: 048
  2. TACROLIMUS. [Concomitant]
     Active Substance: TACROLIMUS
     Dosage: 1 MG CAPSULE
  3. CRESEMBA [Concomitant]
     Active Substance: ISAVUCONAZONIUM SULFATE
     Dosage: 186 MG CAPSULE
  4. MYCOPHENOLIC ACID. [Concomitant]
     Active Substance: MYCOPHENOLIC ACID
     Dosage: 180 MG TABLET DR
  5. ESCITALOPRAM OXALATE. [Concomitant]
     Active Substance: ESCITALOPRAM OXALATE
     Dosage: 20 MG TABLET
  6. VALGANCICLOVIR HCL [Concomitant]
     Dosage: 450 MG TABLET

REACTIONS (1)
  - Sinusitis [Unknown]
